FAERS Safety Report 6725936-8 (Version None)
Quarter: 2010Q2

REPORT INFORMATION
  Report Type: 
  Country: None (occurrence: None)
  Receive Date: 20100514
  Receipt Date: 20100507
  Transmission Date: 20101027
  Serious: Yes (Other)
  Sender: FDA-Public Use
  Company Number: DK-JNJFOC-20100501951

PATIENT
  Sex: Female

DRUGS (3)
  1. CONCERTA [Suspect]
     Indication: ATTENTION DEFICIT/HYPERACTIVITY DISORDER
     Route: 048
  2. CONCERTA [Suspect]
     Dosage: 54/ 58MG
     Route: 048
  3. DOLOL [Interacting]
     Indication: PAIN
     Route: 065

REACTIONS (8)
  - BURNING SENSATION [None]
  - DRUG HYPERSENSITIVITY [None]
  - DRUG INTERACTION [None]
  - HOT FLUSH [None]
  - MANIA [None]
  - PAIN [None]
  - PRURITUS [None]
  - PSYCHOTIC DISORDER [None]
